FAERS Safety Report 15723153 (Version 1)
Quarter: 2018Q4

REPORT INFORMATION
  Report Type: Spontaneous
  Country: US (occurrence: US)
  Receive Date: 20181214
  Receipt Date: 20181214
  Transmission Date: 20190205
  Serious: Yes (Other)
  Sender: FDA-Public Use
  Company Number: US-TEVA-2018-US-987841

PATIENT

DRUGS (2)
  1. AMLODIPINE [Suspect]
     Active Substance: AMLODIPINE BESYLATE
     Dates: start: 20180417
  2. VALSARTAN. [Suspect]
     Active Substance: VALSARTAN
     Dosage: SEVERAL YEARS AGO,
     Route: 065
     Dates: end: 20170820

REACTIONS (3)
  - Recalled product administered [Unknown]
  - Neoplasm malignant [Unknown]
  - Tremor [Unknown]
